FAERS Safety Report 7513868-7 (Version None)
Quarter: 2011Q2

REPORT INFORMATION
  Report Type: 
  Country: None (occurrence: None)
  Receive Date: 20110531
  Receipt Date: 20110519
  Transmission Date: 20111010
  Serious: Yes (Hospitalization, Other)
  Sender: FDA-Public Use
  Company Number: PHHY2011CH43184

PATIENT
  Age: 33 Year
  Sex: Male
  Weight: 70 kg

DRUGS (4)
  1. ACETAMINOPHEN [Interacting]
     Dosage: 500 MG, 5QD
     Dates: start: 20110112, end: 20110114
  2. ACETAMINOPHEN [Interacting]
     Dosage: 1 G, QID
     Route: 048
     Dates: start: 20110112, end: 20110114
  3. CIPROFLOXACIN [Suspect]
     Dosage: 750 MG, BID
     Dates: start: 20101101, end: 20110114
  4. RIMACTANE [Interacting]
     Indication: STAPHYLOCOCCAL INFECTION
     Dosage: 450 MG, BID
     Route: 048
     Dates: start: 20101101, end: 20110114

REACTIONS (5)
  - ACUTE HEPATIC FAILURE [None]
  - GENERAL PHYSICAL HEALTH DETERIORATION [None]
  - HEPATOMEGALY [None]
  - DRUG INTERACTION [None]
  - PROTHROMBIN TIME PROLONGED [None]
